FAERS Safety Report 11568646 (Version 2)
Quarter: 2015Q4

REPORT INFORMATION
  Report Type: Report from Study
  Country: AR (occurrence: AR)
  Receive Date: 20150929
  Receipt Date: 20151009
  Transmission Date: 20160304
  Serious: Yes (Hospitalization, Other)
  Sender: FDA-Public Use
  Company Number: PHHY2015AR116231

PATIENT
  Age: 63 Year
  Sex: Male

DRUGS (3)
  1. GALVUS MET [Suspect]
     Active Substance: METFORMIN HYDROCHLORIDE\VILDAGLIPTIN
     Indication: DIABETES MELLITUS
     Dosage: 1 DF (850/50 OT), QD (START: 3 YEARS AGO)
     Route: 065
     Dates: end: 20150627
  2. DIOVAN [Suspect]
     Active Substance: VALSARTAN
     Indication: BLOOD PRESSURE INCREASED
     Dosage: 1 DF, QD
     Route: 065
  3. GALVUS MET [Suspect]
     Active Substance: METFORMIN HYDROCHLORIDE\VILDAGLIPTIN
     Dosage: 1 DF (850/50 OT), QD
     Route: 065
     Dates: start: 20150720

REACTIONS (11)
  - Choking [Recovering/Resolving]
  - Post procedural complication [Recovering/Resolving]
  - Cough [Recovering/Resolving]
  - Blood glucose increased [Recovering/Resolving]
  - Pericardial disease [Recovering/Resolving]
  - Chest pain [Recovering/Resolving]
  - Muscle atrophy [Recovering/Resolving]
  - Pericarditis infective [Recovering/Resolving]
  - Urinary tract infection [Recovering/Resolving]
  - Weight decreased [Recovering/Resolving]
  - Blood glucose fluctuation [Recovering/Resolving]

NARRATIVE: CASE EVENT DATE: 20150627
